FAERS Safety Report 10870370 (Version 9)
Quarter: 2015Q2

REPORT INFORMATION
  Report Type: Report from Study
  Country: US (occurrence: None)
  Receive Date: 20150223
  Receipt Date: 20150622
  Transmission Date: 20150821
  Serious: Yes (Hospitalization, Other)
  Sender: FDA-Public Use
  Company Number: ADR-2015-00261

PATIENT
  Age: 53 Year
  Sex: Female

DRUGS (21)
  1. ZANAFLEX (TYZANIDINE HYDROCHLORIDE) [Concomitant]
  2. DEBROX [Concomitant]
     Active Substance: CARBAMIDE PEROXIDE
  3. LIORESAL [Suspect]
     Active Substance: BACLOFEN
     Indication: MUSCLE SPASTICITY
     Dates: start: 20141218
  4. TYLENOL NO. 3 (TYLENOL W/CODEINE NO3/CODEINE PHOSPHATE, PARACETAMOL) TABLET [Concomitant]
  5. CALCIUM D (CALCIUM CARBONATE, COLECALCIFEROL) [Concomitant]
  6. VITAMIN D (ERGOCALCIFEROL) [Concomitant]
     Active Substance: ERGOCALCIFEROL
  7. LIORESAL [Suspect]
     Active Substance: BACLOFEN
     Dates: start: 20150501
  8. VENTOLIN [Concomitant]
     Active Substance: ALBUTEROL SULFATE
  9. SINGULAIR [Concomitant]
     Active Substance: MONTELUKAST SODIUM
  10. MAXZIDE (HYDROCHLOROTHIAZIDE TRIAMTERENE) [Concomitant]
  11. PRILOSEC (OMEPRAZOLE) [Concomitant]
     Active Substance: OMEPRAZOLE MAGNESIUM
  12. XARELTO [Concomitant]
     Active Substance: RIVAROXABAN
  13. PULMACORT (BUDOSENIDE) [Concomitant]
  14. SENNA [Concomitant]
     Active Substance: SENNA LEAF\SENNOSIDES\SENNOSIDES A AND B
  15. ZYRTEC (CETIRIZINE HYDROCHLORIDE) TABLET [Concomitant]
  16. KEPPRA [Concomitant]
     Active Substance: LEVETIRACETAM
  17. WARFARIN SODIUM (WARFARIN SODIUM) [Concomitant]
     Active Substance: WARFARIN SODIUM
  18. CALCIUM (CALCIUM) [Concomitant]
     Active Substance: CALCIUM
  19. CYMBALTA [Concomitant]
     Active Substance: DULOXETINE HYDROCHLORIDE
  20. TRAMADOL (TRAMADOL HYDROCHLORIDE) [Concomitant]
     Active Substance: TRAMADOL HYDROCHLORIDE
  21. VERAMYST (FLUTICASONE FUROATE) [Concomitant]

REACTIONS (9)
  - Pain [None]
  - Muscle spasticity [None]
  - Condition aggravated [None]
  - Fall [None]
  - Unevaluable event [None]
  - Muscle spasms [None]
  - Balance disorder [None]
  - Device inversion [None]
  - Device occlusion [None]

NARRATIVE: CASE EVENT DATE: 20150103
